FAERS Safety Report 7264902-3 (Version None)
Quarter: 2011Q1

REPORT INFORMATION
  Report Type: 
  Country: None (occurrence: None)
  Receive Date: 20110131
  Receipt Date: 20110126
  Transmission Date: 20110831
  Serious: Yes (Hospitalization)
  Sender: FDA-Public Use
  Company Number: SE-ABBOTT-11P-150-0700822-00

PATIENT
  Sex: Female

DRUGS (4)
  1. HUMIRA [Suspect]
     Indication: COLITIS ULCERATIVE
     Dates: start: 20110114
  2. ALLOPURINOL [Concomitant]
     Indication: PRODUCT USED FOR UNKNOWN INDICATION
  3. PURINETHOL [Concomitant]
     Indication: PRODUCT USED FOR UNKNOWN INDICATION
  4. REMICADE [Suspect]
     Indication: COLITIS ULCERATIVE
     Dates: start: 20110113

REACTIONS (3)
  - PAIN IN JAW [None]
  - ORAL FUNGAL INFECTION [None]
  - ODYNOPHAGIA [None]
